FAERS Safety Report 15759388 (Version 1)
Quarter: 2018Q4

REPORT INFORMATION
  Report Type: Spontaneous
  Country: BR (occurrence: BR)
  Receive Date: 20181226
  Receipt Date: 20181226
  Transmission Date: 20190205
  Serious: Yes (Other)
  Sender: FDA-Public Use
  Company Number: BR-ABBVIE-18P-020-2488115-00

PATIENT
  Age: 77 Year
  Sex: Male

DRUGS (6)
  1. PAXTRAT [Concomitant]
     Active Substance: PAROXETINE HYDROCHLORIDE
     Indication: PRODUCT USED FOR UNKNOWN INDICATION
  2. VALDOXAN [Concomitant]
     Active Substance: AGOMELATINE
     Indication: PRODUCT USED FOR UNKNOWN INDICATION
  3. DEPAKOTE ER [Suspect]
     Active Substance: DIVALPROEX SODIUM
     Dosage: DAILY DOSE: HALF TABLET OF 500MG TABLET
     Route: 065
     Dates: start: 20180817
  4. DEPAKOTE ER [Suspect]
     Active Substance: DIVALPROEX SODIUM
     Indication: PRODUCT USED FOR UNKNOWN INDICATION
     Route: 065
     Dates: start: 20180808
  5. HERBAL EXTRACT NOS [Suspect]
     Active Substance: HERBALS
     Indication: PRODUCT USED FOR UNKNOWN INDICATION
     Route: 065
  6. FRISIUM [Concomitant]
     Active Substance: CLOBAZAM
     Indication: DEPRESSION
     Dosage: 0.5 TABLET; START DATE: MANY YEARS AGO; DOSE REDUCED RECENTLY

REACTIONS (11)
  - Rash [Recovered/Resolved]
  - Wrong technique in product usage process [Unknown]
  - Dry skin [Recovered/Resolved]
  - Rhinitis [Not Recovered/Not Resolved]
  - Rhinorrhoea [Not Recovered/Not Resolved]
  - Urine analysis abnormal [Not Recovered/Not Resolved]
  - Skin cancer [Recovered/Resolved]
  - Hypersensitivity [Recovered/Resolved]
  - Limb injury [Recovered/Resolved]
  - Weight decreased [Not Recovered/Not Resolved]
  - Chromaturia [Not Recovered/Not Resolved]

NARRATIVE: CASE EVENT DATE: 201808
